FAERS Safety Report 15204668 (Version 4)
Quarter: 2019Q2

REPORT INFORMATION
  Report Type: Spontaneous
  Country: BR (occurrence: BR)
  Receive Date: 20180726
  Receipt Date: 20190415
  Transmission Date: 20190711
  Serious: Yes (Hospitalization, Other)
  Sender: FDA-Public Use
  Company Number: BR-ROCHE-2159733

PATIENT
  Age: 74 Year
  Sex: Female
  Weight: 80.5 kg

DRUGS (7)
  1. VIMOVO [Concomitant]
     Active Substance: ESOMEPRAZOLE MAGNESIUM\NAPROXEN
  2. ACTEMRA [Suspect]
     Active Substance: TOCILIZUMAB
     Route: 042
  3. ACTEMRA [Suspect]
     Active Substance: TOCILIZUMAB
     Route: 042
  4. XELJANZ [Suspect]
     Active Substance: TOFACITINIB CITRATE
     Indication: RHEUMATOID ARTHRITIS
     Dosage: 1 TABLET, TWICE A DAY
     Route: 065
     Dates: start: 201808, end: 201903
  5. ACTEMRA [Suspect]
     Active Substance: TOCILIZUMAB
     Indication: RHEUMATOID ARTHRITIS
     Route: 042
     Dates: start: 20180720, end: 20180720
  6. FOLIC ACID. [Concomitant]
     Active Substance: FOLIC ACID
  7. METHOTREXATE. [Concomitant]
     Active Substance: METHOTREXATE

REACTIONS (9)
  - Dysphagia [Recovered/Resolved]
  - Cough [Recovered/Resolved]
  - Infusion related reaction [Unknown]
  - Dizziness [Recovered/Resolved]
  - Pruritus [Recovered/Resolved]
  - Dyspnoea [Recovered/Resolved]
  - Flushing [Recovered/Resolved]
  - Herpes zoster [Unknown]
  - Nausea [Recovered/Resolved]

NARRATIVE: CASE EVENT DATE: 20180720
